FAERS Safety Report 4788649-8 (Version None)
Quarter: 2005Q4

REPORT INFORMATION
  Report Type: 
  Country: None (occurrence: None)
  Receive Date: 20051005
  Receipt Date: 20050928
  Transmission Date: 20060501
  Serious: Yes (Hospitalization)
  Sender: FDA-Public Use
  Company Number: 8011747

PATIENT
  Age: 51 Year
  Sex: Male

DRUGS (4)
  1. LAMOTRIGINE [Suspect]
     Dosage: 300MG PER DAY
     Route: 065
     Dates: start: 20040820
  2. KEPPRA [Suspect]
     Indication: EPILEPSY
     Route: 065
     Dates: start: 20040601
  3. ATENOLOL [Concomitant]
     Indication: HYPERTENSION
     Dosage: 100MG PER DAY
     Route: 065
  4. LISINOPRIL [Concomitant]
     Indication: HYPERTENSION
     Dosage: 10MG PER DAY
     Route: 065

REACTIONS (5)
  - ABDOMINAL PAIN [None]
  - CONSTIPATION [None]
  - HYPERHIDROSIS [None]
  - RECTAL TENESMUS [None]
  - SOMNOLENCE [None]
